FAERS Safety Report 5946432-1 (Version None)
Quarter: 2008Q4

REPORT INFORMATION
  Report Type: 
  Country: None (occurrence: None)
  Receive Date: 20081106
  Receipt Date: 20081106
  Transmission Date: 20090506
  Serious: No
  Sender: FDA-Public Use
  Company Number: None

PATIENT
  Age: 45 Year
  Sex: Male
  Weight: 72.5755 kg

DRUGS (2)
  1. ABILIFY [Suspect]
     Indication: BIPOLAR DISORDER
     Dosage: 30 TO 60 MG 1/DAY PO
     Route: 048
     Dates: start: 20080609, end: 20080612
  2. SEROQUEL [Suspect]
     Indication: BIPOLAR DISORDER
     Dosage: 25 TO 50 TO 300 MG 1/DAY PO
     Route: 048
     Dates: start: 20080616, end: 20080805

REACTIONS (6)
  - ACTIVITIES OF DAILY LIVING IMPAIRED [None]
  - COMMUNICATION DISORDER [None]
  - DYSKINESIA [None]
  - IMPAIRED WORK ABILITY [None]
  - SOCIAL PROBLEM [None]
  - SPEECH DISORDER [None]
